FAERS Safety Report 5323007-9 (Version None)
Quarter: 2007Q2

REPORT INFORMATION
  Report Type: 
  Country: None (occurrence: None)
  Receive Date: 20070220
  Receipt Date: 20061107
  Transmission Date: 20071010
  Serious: No
  Sender: FDA-Public Use
  Company Number: WAES 0611USA02204

PATIENT
  Age: 62 Year
  Sex: Male

DRUGS (5)
  1. JANUVIA [Suspect]
     Indication: BLOOD GLUCOSE ABNORMAL
     Dosage: 100 MG/DAILY/PO
     Route: 048
     Dates: start: 20061106
  2. AVANDAMET [Concomitant]
  3. LIPITOR [Concomitant]
  4. LOTREL [Concomitant]
  5. TOPROL-XL [Concomitant]

REACTIONS (7)
  - BLOOD GLUCOSE DECREASED [None]
  - BLOOD GLUCOSE INCREASED [None]
  - BLOOD PRESSURE INCREASED [None]
  - DIZZINESS [None]
  - FALL [None]
  - FEELING ABNORMAL [None]
  - HUNGER [None]
